FAERS Safety Report 6085446-0 (Version None)
Quarter: 2009Q1

REPORT INFORMATION
  Report Type: 
  Country: None (occurrence: None)
  Receive Date: 20090217
  Receipt Date: 20080815
  Transmission Date: 20090719
  Serious: No
  Sender: FDA-Public Use
  Company Number: 08H-163-0314742-00

PATIENT
  Sex: Male

DRUGS (1)
  1. PRECEDEX [Suspect]
     Indication: SEDATION
     Dosage: INTRAVENOUS, CONTINUOUS
     Route: 042
     Dates: start: 20080810, end: 20080813

REACTIONS (1)
  - LUNG INFILTRATION [None]
